FAERS Safety Report 8060678-0 (Version None)
Quarter: 2012Q1

REPORT INFORMATION
  Report Type: 
  Country: None (occurrence: None)
  Receive Date: 20120120
  Receipt Date: 20120120
  Transmission Date: 20120608
  Serious: Yes (Death)
  Sender: FDA-Public Use
  Company Number: US-ROXANE LABORATORIES, INC.-2011-RO-01455RO

PATIENT
  Sex: Male

DRUGS (4)
  1. ALPRAZOLAM [Suspect]
  2. BUPRENORPHINE HCL [Suspect]
  3. COCAINE [Suspect]
  4. ALCOHOL [Suspect]

REACTIONS (1)
  - TOXICITY TO VARIOUS AGENTS [None]
